FAERS Safety Report 6190871-3 (Version None)
Quarter: 2009Q2

REPORT INFORMATION
  Report Type: 
  Country: None (occurrence: None)
  Receive Date: 20090514
  Receipt Date: 20090512
  Transmission Date: 20091009
  Serious: Yes (Death)
  Sender: FDA-Public Use
  Company Number: US-GENENTECH-281788

PATIENT
  Sex: Female

DRUGS (17)
  1. AVASTIN [Suspect]
     Indication: MACULAR DEGENERATION
     Dosage: 0.05 ML, SINGLE
     Route: 031
     Dates: start: 20060809, end: 20060809
  2. AVASTIN [Suspect]
     Dosage: 0.05 ML, SINGLE
     Route: 031
     Dates: start: 20060927, end: 20060927
  3. AVASTIN [Suspect]
     Dosage: 0.05 ML, SINGLE
     Route: 031
     Dates: start: 20070417, end: 20070417
  4. AVASTIN [Suspect]
     Dosage: 0.05 ML, SINGLE
     Route: 031
     Dates: start: 20070917, end: 20070917
  5. AVASTIN [Suspect]
     Dosage: 0.05 ML, SINGLE
     Route: 031
     Dates: start: 20070926, end: 20070926
  6. AVASTIN [Suspect]
     Dosage: 0.05 ML, SINGLE
     Route: 031
     Dates: start: 20080227, end: 20080227
  7. AVASTIN [Suspect]
     Dosage: 0.05 ML, SINGLE
     Route: 031
     Dates: start: 20090310, end: 20090310
  8. PLAVIX [Concomitant]
     Indication: DRUG USE FOR UNKNOWN INDICATION
     Dosage: UNK
  9. ASPIRIN [Concomitant]
     Indication: DRUG USE FOR UNKNOWN INDICATION
     Dosage: UNK
  10. M.V.I. [Concomitant]
     Indication: DRUG USE FOR UNKNOWN INDICATION
     Dosage: UNK
  11. METOPROLOL [Concomitant]
     Indication: DRUG USE FOR UNKNOWN INDICATION
     Dosage: UNK
  12. CRESTOR [Concomitant]
     Indication: DRUG USE FOR UNKNOWN INDICATION
     Dosage: UNK
  13. HYDRALAZINE HCL [Concomitant]
     Indication: DRUG USE FOR UNKNOWN INDICATION
     Dosage: UNK
  14. BENAZEPRIL HYDROCHLORIDE [Concomitant]
     Indication: DRUG USE FOR UNKNOWN INDICATION
     Dosage: UNK
  15. AVAPRO [Concomitant]
     Indication: DRUG USE FOR UNKNOWN INDICATION
     Dosage: UNK
  16. BETADINE [Concomitant]
     Indication: DRUG USE FOR UNKNOWN INDICATION
     Dosage: UNK
  17. LIDOCAINE AND EPINEPHRINE [Concomitant]
     Indication: DRUG USE FOR UNKNOWN INDICATION
     Dosage: UNK
     Route: 058

REACTIONS (2)
  - DEATH [None]
  - HAEMORRHAGIC STROKE [None]
